FAERS Safety Report 11209126 (Version 1)
Quarter: 2015Q2

REPORT INFORMATION
  Report Type: Spontaneous
  Country: BR (occurrence: BR)
  Receive Date: 20150622
  Receipt Date: 20150622
  Transmission Date: 20150821
  Serious: Yes (Other)
  Sender: FDA-Public Use
  Company Number: PHHY2015BR072982

PATIENT
  Age: 39 Year
  Sex: Female

DRUGS (3)
  1. BENZYLPENICILLIN [Suspect]
     Active Substance: PENICILLIN G
     Dosage: SECOND DOSE
     Route: 065
  2. BENZYLPENICILLIN [Suspect]
     Active Substance: PENICILLIN G
     Indication: URINARY TRACT INFECTION
     Dosage: FIRST DOSE
     Route: 065
  3. BENZYLPENICILLIN [Suspect]
     Active Substance: PENICILLIN G
     Dosage: 10.000UI/ML (DESENSITIZATION)
     Route: 065

REACTIONS (7)
  - Oxygen consumption decreased [Unknown]
  - Pruritus [Unknown]
  - Bronchospasm [Unknown]
  - Angioedema [Unknown]
  - Rhinitis allergic [Unknown]
  - Urticaria [Unknown]
  - Anaphylactic reaction [Unknown]
